FAERS Safety Report 18936625 (Version 3)
Quarter: 2021Q2

REPORT INFORMATION
  Report Type: Spontaneous
  Country: DE (occurrence: DE)
  Receive Date: 20210224
  Receipt Date: 20210616
  Transmission Date: 20210717
  Serious: Yes (Death, Life-Threatening, Hospitalization, Other)
  Sender: FDA-Public Use
  Company Number: NVSC2021DE043447

PATIENT
  Age: 61 Year
  Sex: Female

DRUGS (5)
  1. BISOPROLOL [Suspect]
     Active Substance: BISOPROLOL
     Dosage: 450 MG
     Route: 065
  2. BISOPROLOL [Suspect]
     Active Substance: BISOPROLOL
     Dosage: 5 MG
     Route: 048
  3. METFORMIN [Suspect]
     Active Substance: METFORMIN HYDROCHLORIDE
     Indication: INTENTIONAL OVERDOSE
     Dosage: UNK
     Route: 048
  4. AMLODIPINE [Suspect]
     Active Substance: AMLODIPINE BESYLATE
     Indication: INTENTIONAL OVERDOSE
     Dosage: UNK
     Route: 048
  5. BISOPROLOL [Suspect]
     Active Substance: BISOPROLOL
     Indication: INTENTIONAL OVERDOSE
     Dosage: 90 DF, QD
     Route: 048

REACTIONS (13)
  - Vasoplegia syndrome [Fatal]
  - Ejection fraction decreased [Fatal]
  - Multiple organ dysfunction syndrome [Fatal]
  - Cardiogenic shock [Fatal]
  - Cardiac arrest [Fatal]
  - Rhabdomyolysis [Fatal]
  - Circulatory collapse [Fatal]
  - Ischaemia [Fatal]
  - Compartment syndrome [Fatal]
  - Drug ineffective [Fatal]
  - Toxicity to various agents [Fatal]
  - Lactic acidosis [Fatal]
  - Intentional overdose [Fatal]
